FAERS Safety Report 9436231 (Version 1)
Quarter: 2013Q3

REPORT INFORMATION
  Report Type: Spontaneous
  Country: US (occurrence: US)
  Receive Date: 20130801
  Receipt Date: 20130801
  Transmission Date: 20140515
  Serious: No
  Sender: FDA-Public Use
  Company Number: US-B.I. PHARMACEUTICALS,INC./RIDGEFIELD-2013-BI-22894BP

PATIENT
  Age: 63 Year
  Sex: Female
  Weight: 87 kg

DRUGS (5)
  1. COMBIVENT [Suspect]
     Indication: CHRONIC OBSTRUCTIVE PULMONARY DISEASE
     Dosage: STRENGTH: 20 MCG / 100 MCG; DAILY DOSE: 160 MCG/800 MCG
     Route: 055
     Dates: start: 201306
  2. SINGULAIR [Concomitant]
     Indication: CHRONIC OBSTRUCTIVE PULMONARY DISEASE
     Dosage: 10 MG
     Route: 048
  3. PREDNISONE [Concomitant]
     Dosage: 10 MG
     Route: 048
  4. ADVAIR [Concomitant]
     Indication: ASTHMA
     Dosage: STRENGTH: 250/50 MG; DAILY DOSE: 500/100 MG
     Route: 055
  5. CARDIZEM ER [Concomitant]
     Indication: ATRIAL FIBRILLATION
     Dosage: 360 MG
     Route: 048

REACTIONS (4)
  - Dyspnoea exertional [Not Recovered/Not Resolved]
  - Lethargy [Not Recovered/Not Resolved]
  - Rash generalised [Not Recovered/Not Resolved]
  - Drug prescribing error [Not Recovered/Not Resolved]
